FAERS Safety Report 6522523-1 (Version None)
Quarter: 2009Q4

REPORT INFORMATION
  Report Type: 
  Country: None (occurrence: None)
  Receive Date: 20091229
  Receipt Date: 20091229
  Transmission Date: 20100525
  Serious: Yes (Other)
  Sender: FDA-Public Use
  Company Number: None

PATIENT
  Age: 53 Year
  Sex: Female
  Weight: 63.5036 kg

DRUGS (1)
  1. LEVAQUIN [Suspect]
     Indication: SINUSITIS
     Dosage: 750MG 1X/DAY PO
     Route: 048
     Dates: start: 20090223, end: 20090301

REACTIONS (12)
  - ASTHENIA [None]
  - BRADYPHRENIA [None]
  - COGNITIVE DISORDER [None]
  - DEPRESSION [None]
  - HYPOACUSIS [None]
  - JOINT STIFFNESS [None]
  - MALAISE [None]
  - MYALGIA [None]
  - NIGHT BLINDNESS [None]
  - TENDONITIS [None]
  - TINNITUS [None]
  - VITREOUS FLOATERS [None]
